FAERS Safety Report 18227518 (Version 1)
Quarter: 2020Q3

REPORT INFORMATION
  Report Type: Spontaneous
  Country: CA (occurrence: CA)
  Receive Date: 20200903
  Receipt Date: 20200903
  Transmission Date: 20201103
  Serious: Yes (Hospitalization)
  Sender: FDA-Public Use
  Company Number: CA-TEVA-2020-CA-1821403

PATIENT
  Sex: Male
  Weight: 3 kg

DRUGS (24)
  1. HYDROMORPHONE [Suspect]
     Active Substance: HYDROMORPHONE
     Indication: FIBROMYALGIA
     Dosage: 2 MILLIGRAM DAILY;
     Route: 048
  2. DEXMEDETOMIDINE. [Concomitant]
     Active Substance: DEXMEDETOMIDINE
  3. DULOXETINE. [Concomitant]
     Active Substance: DULOXETINE
  4. HEPARIN CALCIUM [Concomitant]
     Active Substance: HEPARIN CALCIUM
  5. PROPRANOLOL [Concomitant]
     Active Substance: PROPRANOLOL HYDROCHLORIDE
  6. MORPHINE [Suspect]
     Active Substance: MORPHINE
     Indication: FIBROMYALGIA
     Dosage: 6 MILLIGRAM DAILY;
     Route: 048
  7. METOLAZONE. [Concomitant]
     Active Substance: METOLAZONE
  8. FLUCONAZOLE. [Concomitant]
     Active Substance: FLUCONAZOLE
  9. NOREPINEPHRINE. [Concomitant]
     Active Substance: NOREPINEPHRINE
  10. TETRACAINE. [Concomitant]
     Active Substance: TETRACAINE
  11. FENTANYL. [Concomitant]
     Active Substance: FENTANYL
  12. FUROSEMIDE. [Concomitant]
     Active Substance: FUROSEMIDE
  13. CHOLECALCIFEROL [Concomitant]
     Active Substance: CHOLECALCIFEROL
  14. CYCLOPENTOLATE HYDROCHLORIDE. [Concomitant]
     Active Substance: CYCLOPENTOLATE HYDROCHLORIDE
  15. ACETAMINOPHEN. [Concomitant]
     Active Substance: ACETAMINOPHEN
  16. CEFAZOLIN [Concomitant]
     Active Substance: CEFAZOLIN
  17. PANTOPRAZOLE [Concomitant]
     Active Substance: PANTOPRAZOLE
  18. SPIRONOLACTONE. [Concomitant]
     Active Substance: SPIRONOLACTONE
  19. AMITRIPTYLINE [Concomitant]
     Active Substance: AMITRIPTYLINE
  20. LORAZEPAM. [Concomitant]
     Active Substance: LORAZEPAM
  21. QUETIAPINE. [Concomitant]
     Active Substance: QUETIAPINE
  22. SUCROSE TABLET (S#71) [Concomitant]
  23. CLOTRIMAZOLE. [Concomitant]
     Active Substance: CLOTRIMAZOLE
  24. RANITIDINE. [Concomitant]
     Active Substance: RANITIDINE

REACTIONS (2)
  - Drug withdrawal syndrome neonatal [Unknown]
  - Foetal exposure during pregnancy [Unknown]
